FAERS Safety Report 10670470 (Version 1)
Quarter: 2014Q4

REPORT INFORMATION
  Report Type: Spontaneous
  Country: US (occurrence: US)
  Receive Date: 20141223
  Receipt Date: 20141223
  Transmission Date: 20150529
  Serious: No
  Sender: FDA-Public Use
  Company Number: US-009507513-1412USA010434

PATIENT
  Sex: Female

DRUGS (1)
  1. NOROXIN [Suspect]
     Active Substance: NORFLOXACIN

REACTIONS (2)
  - Vomiting [Unknown]
  - Drug hypersensitivity [Unknown]
